FAERS Safety Report 7470360-6 (Version None)
Quarter: 2011Q2

REPORT INFORMATION
  Report Type: 
  Country: None (occurrence: None)
  Receive Date: 20110510
  Receipt Date: 20110506
  Transmission Date: 20111010
  Serious: Yes (Death, Life-Threatening, Hospitalization)
  Sender: FDA-Public Use
  Company Number: US-B.I. PHARMACEUTICALS,INC./RIDGEFIELD-2011-BP-12538BP

PATIENT
  Sex: Female

DRUGS (1)
  1. PRADAXA [Suspect]

REACTIONS (5)
  - TRACHEOSTOMY [None]
  - DEATH [None]
  - ENDOTRACHEAL INTUBATION [None]
  - TRACHEOSTOMY TUBE REMOVAL [None]
  - EPISTAXIS [None]
